FAERS Safety Report 14836582 (Version 2)
Quarter: 2018Q2

REPORT INFORMATION
  Report Type: Report from Study
  Country: None (occurrence: US)
  Receive Date: 20180502
  Receipt Date: 20180619
  Transmission Date: 20180711
  Serious: Yes (Hospitalization, Other)
  Sender: FDA-Public Use
  Company Number: US-ABBVIE-16K-163-1707514-00

PATIENT
  Age: 60 Year
  Sex: Female

DRUGS (1)
  1. HUMIRA [Suspect]
     Active Substance: ADALIMUMAB
     Indication: COLITIS ULCERATIVE
     Dosage: 3 MONTHS
     Route: 058
     Dates: start: 2015

REACTIONS (9)
  - Inappropriate schedule of drug administration [Unknown]
  - Spinal fracture [Unknown]
  - Arthralgia [Unknown]
  - Colitis ulcerative [Recovered/Resolved]
  - Pyrexia [Recovering/Resolving]
  - Colitis ulcerative [Unknown]
  - Seizure [Unknown]
  - Anaemia [Unknown]
  - Colitis ulcerative [Recovering/Resolving]

NARRATIVE: CASE EVENT DATE: 20160812
